FAERS Safety Report 14296248 (Version 1)
Quarter: 2017Q4

REPORT INFORMATION
  Report Type: Spontaneous
  Country: JP (occurrence: JP)
  Receive Date: 20171218
  Receipt Date: 20171218
  Transmission Date: 20180321
  Serious: Yes (Other)
  Sender: FDA-Public Use
  Company Number: JP-ALLERGAN-1770223US

PATIENT
  Age: 90 Year
  Sex: Female

DRUGS (1)
  1. RISEDRONATE SODIUM - BP [Suspect]
     Active Substance: RISEDRONATE SODIUM
     Indication: PRODUCT USED FOR UNKNOWN INDICATION
     Dosage: 17.5 UNK, UNK
     Route: 048

REACTIONS (3)
  - Fall [Unknown]
  - Jaw fracture [Unknown]
  - Temporomandibular joint syndrome [Unknown]
